FAERS Safety Report 5428469-4 (Version None)
Quarter: 2007Q3

REPORT INFORMATION
  Report Type: 
  Country: None (occurrence: None)
  Receive Date: 20070824
  Receipt Date: 20070820
  Transmission Date: 20080115
  Serious: Yes (Hospitalization, Other)
  Sender: FDA-Public Use
  Company Number: 2007SP016827

PATIENT
  Age: 58 Year
  Sex: Male
  Weight: 93.441 kg

DRUGS (2)
  1. PEG-INTRON [Suspect]
     Indication: HEPATITIS C
     Dosage: SC
     Route: 058
     Dates: start: 20070731
  2. REBETOL [Suspect]
     Indication: HEPATITIS C
     Dosage: PO
     Route: 048
     Dates: start: 20070731

REACTIONS (4)
  - DEHYDRATION [None]
  - RENAL FAILURE [None]
  - VOMITING [None]
  - WEIGHT DECREASED [None]
